FAERS Safety Report 19583184 (Version 7)
Quarter: 2024Q3

REPORT INFORMATION
  Report Type: Report from Study
  Country: IL (occurrence: IL)
  Receive Date: 20210720
  Receipt Date: 20240910
  Transmission Date: 20241016
  Serious: Yes (Death, Hospitalization, Other)
  Sender: ABBVIE
  Company Number: IL-ABBVIE-21K-082-3809483-00

PATIENT
  Age: 81 Year
  Sex: Male
  Weight: 83 kg

DRUGS (19)
  1. VENETOCLAX [Suspect]
     Active Substance: VENETOCLAX
     Indication: Chronic lymphocytic leukaemia
     Dosage: DURATION TEXT: RAMP-UP
     Route: 048
     Dates: start: 20201020, end: 20201026
  2. VENETOCLAX [Suspect]
     Active Substance: VENETOCLAX
     Indication: Chronic lymphocytic leukaemia
     Dosage: DURATION TEXT: RAMP-UP
     Route: 048
     Dates: start: 20201027, end: 20201102
  3. VENETOCLAX [Suspect]
     Active Substance: VENETOCLAX
     Indication: Chronic lymphocytic leukaemia
     Dosage: DURATION TEXT: RAMP-UP
     Route: 048
     Dates: start: 20201103, end: 20201109
  4. VENETOCLAX [Suspect]
     Active Substance: VENETOCLAX
     Indication: Chronic lymphocytic leukaemia
     Dosage: DURATION TEXT: RAMP-UP
     Route: 048
     Dates: start: 20201110, end: 20201116
  5. VENETOCLAX [Suspect]
     Active Substance: VENETOCLAX
     Indication: Chronic lymphocytic leukaemia
     Dosage: DURATION TEXT: DISCONTINUATION-PROGRESSION OF DISEASE
     Route: 048
     Dates: start: 20201117, end: 20210223
  6. RITUXIMAB [Suspect]
     Active Substance: RITUXIMAB
     Indication: Chronic lymphocytic leukaemia
     Dosage: DURATION TEXT: CYCLE 2
     Route: 065
     Dates: start: 20201021, end: 20201021
  7. RITUXIMAB [Suspect]
     Active Substance: RITUXIMAB
     Indication: Chronic lymphocytic leukaemia
     Dosage: DURATION TEXT: CYCLE 3
     Route: 065
     Dates: start: 20201117, end: 20201117
  8. RITUXIMAB [Suspect]
     Active Substance: RITUXIMAB
     Indication: Chronic lymphocytic leukaemia
     Dosage: DURATION TEXT: CYCLE 4
     Route: 065
     Dates: start: 20201215, end: 20201215
  9. RITUXIMAB [Suspect]
     Active Substance: RITUXIMAB
     Indication: Chronic lymphocytic leukaemia
     Dosage: DURATION TEXT: CYCLE 5
     Route: 065
     Dates: start: 20210112, end: 20210112
  10. RITUXIMAB [Suspect]
     Active Substance: RITUXIMAB
     Indication: Chronic lymphocytic leukaemia
     Dosage: DURATION TEXT: CYCLE 6
     Route: 065
     Dates: start: 20210209, end: 20210209
  11. RITUXIMAB [Suspect]
     Active Substance: RITUXIMAB
     Indication: Chronic lymphocytic leukaemia
     Dosage: DURATION TEXT: CYCLE 1
     Route: 065
     Dates: start: 20200922, end: 20200922
  12. ALLOPURINOL [Concomitant]
     Active Substance: ALLOPURINOL
     Indication: Prophylaxis
     Dates: start: 20201020, end: 20201103
  13. AMLODIPINE MALEATE [Concomitant]
     Active Substance: AMLODIPINE MALEATE
     Indication: Hypertension
  14. CALTRATE [Concomitant]
     Active Substance: CALCIUM CARBONATE
     Indication: Supportive care
  15. FOLIC ACID [Concomitant]
     Active Substance: FOLIC ACID
     Indication: Anaemia
  16. NEUPOGEN [Concomitant]
     Active Substance: FILGRASTIM
     Indication: Neutrophil count decreased
     Dates: start: 20210209, end: 20210210
  17. PROMETHAZINE [Concomitant]
     Active Substance: PROMETHAZINE HYDROCHLORIDE
     Indication: Premedication
     Dates: start: 20200922, end: 20210209
  18. HYDROCORTISONE [Concomitant]
     Active Substance: HYDROCORTISONE\HYDROCORTISONE ACETATE
     Indication: Premedication
     Dates: start: 20200922, end: 20210209
  19. ACETAMINOPHEN [Concomitant]
     Active Substance: ACETAMINOPHEN
     Indication: Premedication
     Dates: start: 20200922, end: 20210209

REACTIONS (4)
  - General physical health deterioration [Fatal]
  - Neutrophil count decreased [Recovered/Resolved]
  - Disease progression [Unknown]
  - Neutrophil count decreased [Recovered/Resolved]

NARRATIVE: CASE EVENT DATE: 20210112
